FAERS Safety Report 5350491-7 (Version None)
Quarter: 2007Q2

REPORT INFORMATION
  Report Type: 
  Country: None (occurrence: None)
  Receive Date: 20070606
  Receipt Date: 20070606
  Transmission Date: 20071010
  Serious: No
  Sender: FDA-Public Use
  Company Number: None

PATIENT
  Sex: Female
  Weight: 69.4 kg

DRUGS (2)
  1. CARBOPLATIN [Suspect]
     Dosage: 463 MG
  2. TAXOL [Suspect]
     Dosage: 392 MG

REACTIONS (3)
  - HYPOALBUMINAEMIA [None]
  - HYPOKALAEMIA [None]
  - NEUTROPHIL COUNT ABNORMAL [None]
